FAERS Safety Report 8325100-5 (Version None)
Quarter: 2012Q2

REPORT INFORMATION
  Report Type: 
  Country: None (occurrence: None)
  Receive Date: 20120427
  Receipt Date: 20120420
  Transmission Date: 20120825
  Serious: Yes (Other)
  Sender: FDA-Public Use
  Company Number: TPA2012A02253

PATIENT
  Age: 50 Year
  Sex: Male

DRUGS (2)
  1. SLEEPING PILL (DIPHENHYDRAMINE HYDROCHLORIDE) [Concomitant]
  2. PREVPAC [Suspect]
     Indication: HELICOBACTER INFECTION
     Dosage: 2 IN 1 D, PER ORAL
     Route: 048
     Dates: start: 20120405

REACTIONS (2)
  - CHEST DISCOMFORT [None]
  - TROPONIN INCREASED [None]
